FAERS Safety Report 20144494 (Version 1)
Quarter: 2021Q4

REPORT INFORMATION
  Report Type: Spontaneous
  Country: US (occurrence: US)
  Receive Date: 20211203
  Receipt Date: 20211203
  Transmission Date: 20220303
  Serious: Yes (Death, Hospitalization)
  Sender: FDA-Public Use
  Company Number: US-JNJFOC-20211148149

PATIENT
  Age: 50 Year
  Sex: Female
  Weight: 68 kg

DRUGS (1)
  1. TYLENOL PM [Suspect]
     Active Substance: ACETAMINOPHEN\DIPHENHYDRAMINE
     Indication: Completed suicide
     Dosage: TOOK 25 TABLETS WITH TOTAL DOSE 12500 MG (ACETAMINOPHEN 500 MG AND DIPHENHYDRAMINE HYDROCHLORIDE 25
     Route: 048
     Dates: start: 20020430, end: 20020430

REACTIONS (8)
  - Completed suicide [Fatal]
  - Chest X-ray abnormal [Fatal]
  - Acute kidney injury [Fatal]
  - Sepsis [Fatal]
  - Multiple organ dysfunction syndrome [Fatal]
  - Gastrointestinal haemorrhage [Fatal]
  - Acute hepatic failure [Fatal]
  - Intentional overdose [Fatal]

NARRATIVE: CASE EVENT DATE: 20020503
